FAERS Safety Report 8043049-2 (Version None)
Quarter: 2012Q1

REPORT INFORMATION
  Report Type: 
  Country: None (occurrence: None)
  Receive Date: 20120112
  Receipt Date: 20120111
  Transmission Date: 20120608
  Serious: Yes (Death)
  Sender: FDA-Public Use
  Company Number: PHFR2011GB007389

PATIENT
  Age: 94 Year

DRUGS (1)
  1. TEGRETOL [Suspect]
     Dosage: 100 MG, UNK

REACTIONS (2)
  - DEATH [None]
  - DYSPHAGIA [None]
